FAERS Safety Report 10045457 (Version 1)
Quarter: 2014Q1

REPORT INFORMATION
  Report Type: Spontaneous
  Country: SE (occurrence: SE)
  Receive Date: 20140328
  Receipt Date: 20140328
  Transmission Date: 20141002
  Serious: Yes (Other)
  Sender: FDA-Public Use
  Company Number: CHPA2014SE004274

PATIENT
  Sex: Female

DRUGS (1)
  1. OTRIVIN [Suspect]
     Dosage: UNK UNK, QD

REACTIONS (2)
  - Drug dependence [Unknown]
  - Incorrect drug administration duration [Unknown]
